FAERS Safety Report 18752937 (Version 2)
Quarter: 2021Q1

REPORT INFORMATION
  Report Type: Spontaneous
  Country: US (occurrence: US)
  Receive Date: 20210118
  Receipt Date: 20210215
  Transmission Date: 20210419
  Serious: Yes (Life-Threatening, Hospitalization, Other)
  Sender: FDA-Public Use
  Company Number: US-ASTRAZENECA-2021A008813

PATIENT
  Age: 26759 Day
  Sex: Male
  Weight: 68 kg

DRUGS (1)
  1. TAGRISSO [Suspect]
     Active Substance: OSIMERTINIB
     Indication: LUNG NEOPLASM MALIGNANT
     Route: 048
     Dates: start: 202009

REACTIONS (10)
  - Pneumonitis [Unknown]
  - General physical condition abnormal [Unknown]
  - Pain [Unknown]
  - Pneumothorax [Unknown]
  - Headache [Unknown]
  - Diarrhoea [Unknown]
  - Swelling [Unknown]
  - Oxygen consumption decreased [Unknown]
  - Coma [Unknown]
  - Lung disorder [Unknown]

NARRATIVE: CASE EVENT DATE: 20201110
